FAERS Safety Report 7796996-0 (Version None)
Quarter: 2011Q4

REPORT INFORMATION
  Report Type: 
  Country: None (occurrence: None)
  Receive Date: 20111005
  Receipt Date: 20111005
  Transmission Date: 20120403
  Serious: Yes (Other)
  Sender: FDA-Public Use
  Company Number: None

PATIENT
  Age: 40 Year
  Sex: Male
  Weight: 86.182 kg

DRUGS (1)
  1. CHORIONIC GONADOTROPIN [Suspect]
     Dosage: 1500 IU
     Route: 058
     Dates: start: 20110930, end: 20110930

REACTIONS (3)
  - PYREXIA [None]
  - NASOPHARYNGITIS [None]
  - INJECTION RELATED REACTION [None]
